FAERS Safety Report 11459082 (Version 2)
Quarter: 2017Q3

REPORT INFORMATION
  Report Type: Spontaneous
  Country: US (occurrence: US)
  Receive Date: 20150904
  Receipt Date: 20170830
  Transmission Date: 20171127
  Serious: Yes (Other)
  Sender: FDA-Public Use
  Company Number: US-ABBVIE-15P-163-1455932-00

PATIENT
  Sex: Female

DRUGS (1)
  1. HUMIRA [Suspect]
     Active Substance: ADALIMUMAB
     Indication: HIDRADENITIS
     Route: 058

REACTIONS (12)
  - Myalgia [Recovered/Resolved]
  - Pain [Unknown]
  - Headache [Recovered/Resolved]
  - Systemic lupus erythematosus [Unknown]
  - Abscess [Unknown]
  - Pain [Recovered/Resolved]
  - Arthralgia [Recovered/Resolved]
  - Systemic lupus erythematosus [Unknown]
  - Immunodeficiency [Unknown]
  - Abscess [Unknown]
  - Nausea [Recovered/Resolved]
  - Hidradenitis [Unknown]

NARRATIVE: CASE EVENT DATE: 201708
